FAERS Safety Report 6253932-6 (Version None)
Quarter: 2009Q3

REPORT INFORMATION
  Report Type: 
  Country: None (occurrence: None)
  Receive Date: 20090702
  Receipt Date: 20090622
  Transmission Date: 20100115
  Serious: Yes (Life-Threatening, Hospitalization, Other)
  Sender: FDA-Public Use
  Company Number: ES-WYE-H09885209

PATIENT
  Age: 46 Year
  Sex: Female

DRUGS (3)
  1. CEFEPIME [Suspect]
     Indication: INFECTION
     Route: 065
  2. EBASTINE [Suspect]
     Indication: DRUG USE FOR UNKNOWN INDICATION
     Dosage: UNKNOWN
     Route: 065
  3. IBUPROFEN TABLETS [Suspect]
     Indication: DRUG USE FOR UNKNOWN INDICATION
     Route: 048

REACTIONS (1)
  - HEPATITIS FULMINANT [None]
